FAERS Safety Report 6543837-5 (Version None)
Quarter: 2010Q1

REPORT INFORMATION
  Report Type: 
  Country: None (occurrence: None)
  Receive Date: 20100120
  Receipt Date: 20100106
  Transmission Date: 20100710
  Serious: Yes (Life-Threatening, Hospitalization)
  Sender: FDA-Public Use
  Company Number: FR-ASTRAZENECA-2010SE00449

PATIENT
  Age: 16032 Day
  Sex: Male

DRUGS (10)
  1. SELOZOK [Suspect]
     Route: 048
  2. MIANSERINE [Interacting]
     Route: 048
     Dates: start: 20081230, end: 20090202
  3. MEXITIL [Interacting]
     Route: 048
     Dates: end: 20090202
  4. CORDARONE [Interacting]
     Dosage: 200 MG DAILY EVERY OTHER DAY, 400 MG EVERY OTHER DAY
     Route: 048
  5. COVERSYL [Concomitant]
     Route: 048
  6. PREVISCAN [Concomitant]
  7. LASIX [Concomitant]
  8. ALDACTONE [Concomitant]
  9. MAG 2 [Concomitant]
  10. XANAX [Concomitant]
     Route: 048
     Dates: start: 20081124

REACTIONS (3)
  - CARDIAC ARREST [None]
  - DRUG INTERACTION [None]
  - TORSADE DE POINTES [None]
